FAERS Safety Report 18958410 (Version 2)
Quarter: 2021Q4

REPORT INFORMATION
  Report Type: Spontaneous
  Country: US (occurrence: US)
  Receive Date: 20210302
  Receipt Date: 20211206
  Transmission Date: 20220303
  Serious: No
  Sender: FDA-Public Use
  Company Number: US-CELGENE-USA-20210206774

PATIENT
  Sex: Male
  Weight: 102.15 kg

DRUGS (1)
  1. POMALYST [Suspect]
     Active Substance: POMALIDOMIDE
     Indication: Plasma cell myeloma
     Dosage: 3 MILLIGRAM
     Route: 048
     Dates: start: 20200916

REACTIONS (2)
  - Laboratory test abnormal [Not Recovered/Not Resolved]
  - Blood potassium decreased [Recovering/Resolving]
